FAERS Safety Report 5715939-4 (Version None)
Quarter: 2008Q2

REPORT INFORMATION
  Report Type: 
  Country: None (occurrence: None)
  Receive Date: 20080423
  Receipt Date: 20080423
  Transmission Date: 20081010
  Serious: Yes (Other)
  Sender: FDA-Public Use
  Company Number: None

PATIENT
  Age: 69 Year
  Sex: Female
  Weight: 58.9676 kg

DRUGS (2)
  1. MELOXICAM [Suspect]
     Indication: OSTEOARTHRITIS
     Dosage: 7.5 MG ONCE A DAY PO
     Route: 048
     Dates: start: 20070501, end: 20080422
  2. MELOXICAM [Suspect]
     Indication: RHEUMATOID ARTHRITIS
     Dosage: 7.5 MG ONCE A DAY PO
     Route: 048
     Dates: start: 20070501, end: 20080422

REACTIONS (5)
  - BONE DISORDER [None]
  - CONDITION AGGRAVATED [None]
  - INFLAMMATION [None]
  - PHARMACEUTICAL PRODUCT COMPLAINT [None]
  - RHEUMATOID ARTHRITIS [None]
